FAERS Safety Report 7495444-8 (Version None)
Quarter: 2011Q2

REPORT INFORMATION
  Report Type: 
  Country: None (occurrence: None)
  Receive Date: 20110523
  Receipt Date: 20110404
  Transmission Date: 20111010
  Serious: No
  Sender: FDA-Public Use
  Company Number: US-TYCO HEALTHCARE/MALLINCKRODT-T201100723

PATIENT
  Sex: Female

DRUGS (2)
  1. FENTANYL-100 [Suspect]
     Indication: PAIN
     Dosage: 100 MCG/HR, 1 PATCH Q 72 HRS
     Route: 061
     Dates: start: 20110323, end: 20110401
  2. FENTANYL-100 [Suspect]
     Dosage: 25 MCG/HR, 1 PATCH Q 72 HRS
     Route: 061

REACTIONS (1)
  - APPLICATION SITE VESICLES [None]
